FAERS Safety Report 19219525 (Version 1)
Quarter: 2021Q2

REPORT INFORMATION
  Report Type: Spontaneous
  Country: US (occurrence: US)
  Receive Date: 20210506
  Receipt Date: 20210506
  Transmission Date: 20210717
  Serious: Yes (Life-Threatening)
  Sender: FDA-Public Use
  Company Number: US-ROCHE-2641558

PATIENT
  Age: 71 Year
  Sex: Male
  Weight: 104.42 kg

DRUGS (24)
  1. LEVOCETIRIZINE [Concomitant]
     Active Substance: LEVOCETIRIZINE
     Indication: ASTHMA
     Dosage: YES
     Route: 048
  2. AZELASTINE;FLUTICASONE [Concomitant]
     Active Substance: AZELASTINE HYDROCHLORIDE\FLUTICASONE PROPIONATE
     Indication: ASTHMA
     Dosage: 137/50MCG ;ONGOING: YES
     Route: 045
  3. LANSOPRAZOLE. [Concomitant]
     Active Substance: LANSOPRAZOLE
     Indication: HIATUS HERNIA
     Dosage: YES
     Route: 048
  4. SUPER B COMPLEX [Concomitant]
     Active Substance: CYANOCOBALAMIN\DEXPANTHENOL\NIACINAMIDE\PYRIDOXINE HYDROCHLORIDE\RIBOFLAVIN 5^-PHOSPHATE SODIUM\THIAMINE HYDROCHLORIDE\VITAMIN B COMPLEX
     Dosage: SUPPLEMENT. YES
     Route: 048
  5. AZELASTINE;FLUTICASONE [Concomitant]
     Active Substance: AZELASTINE HYDROCHLORIDE\FLUTICASONE PROPIONATE
     Indication: NASAL CONGESTION
  6. TRAVOPROST. [Concomitant]
     Active Substance: TRAVOPROST
     Indication: GLAUCOMA
     Dosage: YES
     Route: 031
  7. ACETYLCYSTEINE. [Concomitant]
     Active Substance: ACETYLCYSTEINE
     Dosage: INDICATION: BREAK UP MUCOUS IN LUNGS, YES
     Route: 055
     Dates: start: 201912
  8. CALCIUM [Concomitant]
     Active Substance: CALCIUM
     Dosage: SUPPLEMENT, YES.
     Route: 048
  9. FLUTICASONE;VILANTEROL [Concomitant]
     Active Substance: FLUTICASONE FUROATE\VILANTEROL TRIFENATATE
     Indication: ASTHMA
     Dosage: 200/25MCG ;ONGOING: YES
     Route: 055
     Dates: start: 202006
  10. METOPROLOL. [Concomitant]
     Active Substance: METOPROLOL
     Indication: CARDIAC ABLATION
     Dosage: YES
     Route: 048
     Dates: start: 201810
  11. APIXABAN [Concomitant]
     Active Substance: APIXABAN
     Indication: ANTICOAGULANT THERAPY
     Dosage: YES
     Route: 048
     Dates: start: 201810
  12. ALBUTEROL. [Concomitant]
     Active Substance: ALBUTEROL
     Dosage: INDICATION: BREAK UP MUCOUS IN LUNGS. YES
     Route: 055
     Dates: start: 201912
  13. VITAMIN D3 [Concomitant]
     Active Substance: CHOLECALCIFEROL
     Dosage: SUPPLEMENT, YES
     Route: 048
  14. ACIDOPHILUS [Concomitant]
     Active Substance: LACTOBACILLUS ACIDOPHILUS
     Dosage: SUPPLEMENT, YES
     Route: 048
  15. DUTASTERIDE. [Concomitant]
     Active Substance: DUTASTERIDE
     Dosage: INDICATION: SWOLLEN PROSTRATE. YES
     Route: 048
  16. DORZOLAMIDE [Concomitant]
     Active Substance: DORZOLAMIDE
     Indication: GLAUCOMA
     Dosage: TWO DROPS PER EYE ;ONGOING: YES
     Route: 031
  17. EZETIMIBE;SIMVASTATIN [Concomitant]
     Active Substance: EZETIMIBE\SIMVASTATIN
     Indication: BLOOD CHOLESTEROL INCREASED
     Dosage: 10/20MG ;ONGOING: YES
     Route: 048
  18. NIACIN. [Concomitant]
     Active Substance: NIACIN
     Dosage: SUPPLEMENT, YES.
     Route: 048
  19. MAGNESIUM [Concomitant]
     Active Substance: MAGNESIUM
     Dosage: SUPPLEMENT, YES.
     Route: 048
  20. ESBRIET [Suspect]
     Active Substance: PIRFENIDONE
     Indication: PULMONARY FIBROSIS
     Dosage: ONGOING; NO
     Route: 048
     Dates: start: 20200701, end: 20200711
  21. VITAMIN C [Concomitant]
     Active Substance: ASCORBIC ACID
     Dosage: SUPPLEMENT, YES
     Route: 048
  22. MILK THISTLE [Concomitant]
     Active Substance: DIETARY SUPPLEMENT\HERBALS\MILK THISTLE
     Dosage: SUPPLEMENT, YES.
     Route: 048
  23. TURMERIC [Concomitant]
     Active Substance: HERBALS\TURMERIC
     Dosage: SUPPLEMENT, YES
     Route: 048
  24. MONTELUKAST [Concomitant]
     Active Substance: MONTELUKAST SODIUM
     Indication: ASTHMA
     Dosage: YES
     Route: 048

REACTIONS (5)
  - Nausea [Recovered/Resolved]
  - Asthenia [Recovered/Resolved]
  - Dizziness [Recovered/Resolved]
  - Headache [Recovered/Resolved]
  - Dyspnoea [Recovered/Resolved]

NARRATIVE: CASE EVENT DATE: 20200701
